FAERS Safety Report 16876130 (Version 1)
Quarter: 2019Q4

REPORT INFORMATION
  Report Type: Spontaneous
  Country: US (occurrence: US)
  Receive Date: 20191002
  Receipt Date: 20191002
  Transmission Date: 20200122
  Serious: No
  Sender: FDA-Public Use
  Company Number: US-GW PHARMA-201907USGW2372

PATIENT

DRUGS (5)
  1. ZONISAMIDE. [Concomitant]
     Active Substance: ZONISAMIDE
     Indication: EPILEPSY
     Dosage: 500 MILLIGRAM, QD (200 MG IN MORNING AND 300 MG IN EVENING)
     Route: 065
  2. FYCOMPA [Concomitant]
     Active Substance: PERAMPANEL
     Indication: EPILEPSY
     Dosage: 4 MILLIGRAM, QD (AT NIGHT)
     Route: 065
  3. EPIDIOLEX [Suspect]
     Active Substance: CANNABIDIOL
     Indication: EPILEPSY
     Dosage: 19.7 MG/KG, 550 MILLIGRAM, BID
     Route: 048
     Dates: start: 20190423
  4. VIMPAT [Concomitant]
     Active Substance: LACOSAMIDE
     Indication: EPILEPSY
     Dosage: 200 MILLIGRAM, BID
     Route: 065
  5. BRIVIACT [Concomitant]
     Active Substance: BRIVARACETAM
     Indication: EPILEPSY
     Dosage: 100 MILLIGRAM, BID
     Route: 065

REACTIONS (1)
  - Skin discolouration [Unknown]

NARRATIVE: CASE EVENT DATE: 201906
